FAERS Safety Report 10563673 (Version 1)
Quarter: 2014Q4

REPORT INFORMATION
  Report Type: Spontaneous
  Country: US (occurrence: None)
  Receive Date: 20141103
  Receipt Date: 20141103
  Transmission Date: 20150529
  Serious: Yes (Disabling)
  Sender: FDA-Public Use
  Company Number: None

PATIENT
  Age: 45 Year
  Sex: Female
  Weight: 75.3 kg

DRUGS (2)
  1. DULOXETINE HYDROCHLORIDE. [Suspect]
     Active Substance: DULOXETINE HYDROCHLORIDE
     Indication: ANXIETY
     Route: 048
     Dates: start: 20140130, end: 20141102
  2. DULOXETINE HYDROCHLORIDE. [Suspect]
     Active Substance: DULOXETINE HYDROCHLORIDE
     Indication: PAIN
     Route: 048
     Dates: start: 20140130, end: 20141102

REACTIONS (12)
  - Asthenia [None]
  - Fatigue [None]
  - Headache [None]
  - Impaired work ability [None]
  - Pain [None]
  - Dizziness [None]
  - Anxiety [None]
  - Abnormal dreams [None]
  - Bradyphrenia [None]
  - Disturbance in attention [None]
  - Activities of daily living impaired [None]
  - Heart rate irregular [None]

NARRATIVE: CASE EVENT DATE: 20141102
